FAERS Safety Report 17033791 (Version 11)
Quarter: 2022Q4

REPORT INFORMATION
  Report Type: Report from Study
  Country: US (occurrence: US)
  Receive Date: 20191114
  Receipt Date: 20221126
  Transmission Date: 20230113
  Serious: Yes (Hospitalization, Disabling, Other)
  Sender: FDA-Public Use
  Company Number: US-ABBVIE-19P-163-2996478-00

PATIENT
  Age: 18 Year
  Sex: Female

DRUGS (37)
  1. HUMIRA [Suspect]
     Active Substance: ADALIMUMAB
     Indication: Crohn^s disease
     Route: 058
     Dates: start: 20130508, end: 20180417
  2. HUMIRA [Suspect]
     Active Substance: ADALIMUMAB
     Route: 058
     Dates: start: 20180425, end: 20180705
  3. HUMIRA [Suspect]
     Active Substance: ADALIMUMAB
     Route: 058
     Dates: start: 2018, end: 201903
  4. HUMIRA [Suspect]
     Active Substance: ADALIMUMAB
     Route: 058
     Dates: start: 2019, end: 2019
  5. HUMIRA [Suspect]
     Active Substance: ADALIMUMAB
     Dosage: TIME INTERVAL: 1 TOTAL
     Route: 058
     Dates: start: 20190420, end: 20190420
  6. HUMIRA [Suspect]
     Active Substance: ADALIMUMAB
     Dosage: TIME INTERVAL: 1 TOTAL
     Route: 058
     Dates: start: 20190507, end: 20190507
  7. MERCAPTOPURINE [Suspect]
     Active Substance: MERCAPTOPURINE
     Indication: Crohn^s disease
     Route: 048
     Dates: start: 20101213, end: 201807
  8. MERCAPTOPURINE [Suspect]
     Active Substance: MERCAPTOPURINE
     Indication: Crohn^s disease
     Route: 048
     Dates: start: 201809, end: 201906
  9. MERCAPTOPURINE [Suspect]
     Active Substance: MERCAPTOPURINE
     Indication: Crohn^s disease
     Route: 048
     Dates: start: 20200713, end: 20221121
  10. HYDROCORTISONE [Concomitant]
     Active Substance: HYDROCORTISONE
     Indication: Crohn^s disease
     Dosage: 1 APPLICATION
     Route: 054
     Dates: start: 20130220
  11. ACETAMINOPHEN-CAFFEINE [Concomitant]
     Indication: Tension headache
     Dosage: TIME INTERVAL: AS NECESSARY
     Route: 048
     Dates: start: 20150527
  12. ALBUTEROL [Concomitant]
     Active Substance: ALBUTEROL
     Indication: Wheezing
     Dosage: TIME INTERVAL: AS NECESSARY
     Route: 055
     Dates: start: 20170809
  13. CETIRIZINE [Concomitant]
     Active Substance: CETIRIZINE HYDROCHLORIDE
     Indication: Hypersensitivity
     Route: 048
     Dates: start: 20170807
  14. FLUDROCORTISONE [Concomitant]
     Active Substance: FLUDROCORTISONE
     Indication: Syncope
     Route: 048
     Dates: start: 20171107
  15. FLUOCINONIDE GEL [Concomitant]
     Indication: Eczema
     Dosage: 1 APPLICATION
     Route: 061
     Dates: start: 20170907, end: 20200511
  16. LACTOBACILLUS ACIDOPHILUS [Concomitant]
     Active Substance: LACTOBACILLUS ACIDOPHILUS
     Indication: Irritable bowel syndrome
     Route: 048
     Dates: start: 20130320
  17. IRON\VITAMINS [Concomitant]
     Active Substance: IRON\VITAMINS
     Indication: Nutritional supplementation
     Route: 048
     Dates: start: 20170615
  18. ONDANSETRON [Concomitant]
     Active Substance: ONDANSETRON
     Indication: Nausea
     Dosage: TIME INTERVAL: AS NECESSARY
     Route: 048
     Dates: start: 20150530, end: 20200512
  19. PROPRANOLOL [Concomitant]
     Active Substance: PROPRANOLOL HYDROCHLORIDE
     Indication: Tension headache
     Route: 048
     Dates: start: 20170602
  20. RANITIDINE [Concomitant]
     Active Substance: RANITIDINE
     Indication: Dyspepsia
     Dosage: TIME INTERVAL: AS NECESSARY
     Route: 048
     Dates: start: 20160219, end: 20181121
  21. SERTRALINE [Concomitant]
     Active Substance: SERTRALINE HYDROCHLORIDE
     Indication: Post-traumatic stress disorder
     Route: 048
     Dates: start: 20161209
  22. TRIAMCINOLONE [Concomitant]
     Active Substance: TRIAMCINOLONE
     Indication: Dermatitis
     Dosage: TIME INTERVAL: AS NECESSARY: 1 APPLICATION
     Route: 061
  23. CIPROFLOXACIN [Concomitant]
     Active Substance: CIPROFLOXACIN
     Indication: Fistula
     Route: 048
     Dates: start: 2018
  24. METRONIDAZOLE [Concomitant]
     Active Substance: METRONIDAZOLE
     Indication: Fistula
     Route: 048
     Dates: start: 2018
  25. OXYCODONE [Concomitant]
     Active Substance: OXYCODONE
     Indication: Pain
     Dosage: TIME INTERVAL: AS NECESSARY
     Route: 048
     Dates: start: 20180715
  26. AMOXICILLIN [Concomitant]
     Active Substance: AMOXICILLIN
     Indication: Impetigo
     Route: 048
     Dates: start: 2018
  27. ETHINYL ESTRADIOL\LEVONORGESTREL [Concomitant]
     Active Substance: ETHINYL ESTRADIOL\LEVONORGESTREL
     Indication: Dysmenorrhoea
     Route: 048
     Dates: start: 2018
  28. CEFDINIR [Concomitant]
     Active Substance: CEFDINIR
     Indication: Acute sinusitis
     Route: 048
     Dates: start: 201812
  29. CEPHALEXIN [Concomitant]
     Active Substance: CEPHALEXIN
     Indication: Impetigo
     Route: 048
     Dates: start: 2019
  30. MUPIROCIN [Concomitant]
     Active Substance: MUPIROCIN
     Indication: Impetigo
     Dosage: 1 APPLICATOR
     Route: 061
     Dates: start: 2018
  31. NYSTATIN [Concomitant]
     Active Substance: NYSTATIN
     Indication: Stoma site irritation
     Dosage: 1 APPLICATION
     Route: 061
     Dates: start: 2019
  32. ACETAMINOPHEN [Concomitant]
     Active Substance: ACETAMINOPHEN
     Indication: Pyrexia
     Dosage: TIME INTERVAL: AS NECESSARY
     Route: 048
     Dates: start: 20190418
  33. BUSPIRONE [Concomitant]
     Active Substance: BUSPIRONE HYDROCHLORIDE
     Indication: Anxiety
     Route: 048
     Dates: start: 20190419
  34. SERTRALINE [Concomitant]
     Active Substance: SERTRALINE HYDROCHLORIDE
     Indication: Depression
     Route: 048
     Dates: start: 20190419
  35. GLUCAGON [Concomitant]
     Active Substance: GLUCAGON
     Indication: X-ray gastrointestinal tract
     Dosage: TIME INTERVAL: 1 TOTAL
     Route: 042
     Dates: start: 20190419
  36. SORBITOL [Concomitant]
     Active Substance: SORBITOL
     Indication: Magnetic resonance imaging abdominal
     Route: 048
     Dates: start: 20190419
  37. GADOBUTROL [Concomitant]
     Active Substance: GADOBUTROL
     Indication: Magnetic resonance imaging
     Dosage: TIME INTERVAL: 1 TOTAL
     Route: 042
     Dates: start: 20190419

REACTIONS (2)
  - Post procedural fistula [Recovered/Resolved]
  - Skin candida [Recovered/Resolved]

NARRATIVE: CASE EVENT DATE: 20190225
